FAERS Safety Report 15792786 (Version 2)
Quarter: 2019Q1

REPORT INFORMATION
  Report Type: Spontaneous
  Country: US (occurrence: US)
  Receive Date: 20190107
  Receipt Date: 20190125
  Transmission Date: 20190417
  Serious: No
  Sender: FDA-Public Use
  Company Number: US-AMGEN-USASP2019000256

PATIENT
  Age: 78 Year
  Sex: Female
  Weight: 48.98 kg

DRUGS (1)
  1. PROLIA [Suspect]
     Active Substance: DENOSUMAB
     Indication: OSTEOPOROSIS POSTMENOPAUSAL
     Dosage: 60 MG, Q6MO
     Route: 058
     Dates: start: 2017, end: 20181227

REACTIONS (12)
  - Back pain [Recovering/Resolving]
  - Cough [Recovering/Resolving]
  - Pollakiuria [Recovering/Resolving]
  - Diarrhoea [Unknown]
  - Gait disturbance [Unknown]
  - Nocturia [Unknown]
  - Asthenia [Recovering/Resolving]
  - Constipation [Recovering/Resolving]
  - Vomiting [Unknown]
  - Chills [Unknown]
  - Myalgia [Not Recovered/Not Resolved]
  - Pain in extremity [Unknown]

NARRATIVE: CASE EVENT DATE: 20171219
